FAERS Safety Report 15889282 (Version 2)
Quarter: 2019Q1

REPORT INFORMATION
  Report Type: Spontaneous
  Country: CA (occurrence: CA)
  Receive Date: 20190130
  Receipt Date: 20190319
  Transmission Date: 20190417
  Serious: Yes (Other)
  Sender: FDA-Public Use
  Company Number: CA-BAUSCH-BL-2019-002498

PATIENT
  Sex: Female
  Weight: 79.45 kg

DRUGS (3)
  1. LOTEMAX [Suspect]
     Active Substance: LOTEPREDNOL ETABONATE
     Indication: PRODUCT USE IN UNAPPROVED INDICATION
     Dosage: RE-STARTED
     Route: 047
  2. XALATAN [Concomitant]
     Active Substance: LATANOPROST
     Indication: PRODUCT USED FOR UNKNOWN INDICATION
     Route: 047
  3. LOTEMAX [Suspect]
     Active Substance: LOTEPREDNOL ETABONATE
     Indication: KERATITIS
     Route: 047
     Dates: start: 20181003

REACTIONS (4)
  - Eye inflammation [Unknown]
  - Product use in unapproved indication [Unknown]
  - Glaucoma [Recovering/Resolving]
  - Product container issue [Unknown]
